FAERS Safety Report 8045406-7 (Version None)
Quarter: 2012Q1

REPORT INFORMATION
  Report Type: 
  Country: None (occurrence: None)
  Receive Date: 20120113
  Receipt Date: 20120105
  Transmission Date: 20120608
  Serious: Yes (Hospitalization, Other)
  Sender: FDA-Public Use
  Company Number: US-AMGEN-USASP2012000791

PATIENT
  Age: 48 Year
  Sex: Female

DRUGS (1)
  1. ENBREL [Suspect]
     Indication: RHEUMATOID ARTHRITIS
     Dosage: UNK
     Dates: start: 20110117, end: 20110101

REACTIONS (8)
  - SPEECH DISORDER [None]
  - FATIGUE [None]
  - RHEUMATOID ARTHRITIS [None]
  - TOOTH INFECTION [None]
  - HYPERSENSITIVITY [None]
  - NERVOUS SYSTEM DISORDER [None]
  - UPPER RESPIRATORY TRACT INFECTION [None]
  - PERSONALITY DISORDER [None]
